FAERS Safety Report 4354214-X (Version None)
Quarter: 2004Q2

REPORT INFORMATION
  Report Type: 
  Country: None (occurrence: None)
  Receive Date: 20040506
  Receipt Date: 20040427
  Transmission Date: 20050107
  Serious: Yes (Death)
  Sender: FDA-Public Use
  Company Number: JP-BRISTOL-MYERS SQUIBB COMPANY-12572186

PATIENT
  Age: 56 Year
  Sex: Male

DRUGS (2)
  1. TAXOL [Suspect]
     Indication: LUNG NEOPLASM MALIGNANT
     Route: 042
     Dates: start: 20040309, end: 20040323
  2. PARAPLATIN [Concomitant]
     Route: 042
     Dates: start: 20040309, end: 20040309

REACTIONS (1)
  - INTERSTITIAL LUNG DISEASE [None]
